FAERS Safety Report 8036142-1 (Version None)
Quarter: 2012Q1

REPORT INFORMATION
  Report Type: 
  Country: None (occurrence: None)
  Receive Date: 20120105
  Receipt Date: 20111227
  Transmission Date: 20120608
  Serious: Yes (Other)
  Sender: FDA-Public Use
  Company Number: 2011SP039601

PATIENT
  Age: 29 Year
  Sex: Female
  Weight: 65 kg

DRUGS (1)
  1. DESOGESTREL AND ETHINYL ESTRADIOL [Suspect]
     Indication: CONTRACEPTION
     Dosage: PO
     Route: 048
     Dates: start: 20020101

REACTIONS (3)
  - CANDIDIASIS [None]
  - HYPERSOMNIA [None]
  - OCULAR VASCULITIS [None]
